FAERS Safety Report 9772673 (Version 2)
Quarter: 2014Q1

REPORT INFORMATION
  Report Type: Spontaneous
  Country: CL (occurrence: CL)
  Receive Date: 20131219
  Receipt Date: 20140109
  Transmission Date: 20141002
  Serious: Yes (Other)
  Sender: FDA-Public Use
  Company Number: CL-PFIZER INC-2013360404

PATIENT
  Age: 80 Year
  Sex: Male

DRUGS (3)
  1. XALATAN [Suspect]
     Indication: GLAUCOMA
     Dosage: 1 DROP PER EYE 1X/DAY
     Route: 047
     Dates: start: 201112
  2. ATENOLOL [Concomitant]
     Dosage: 0.5 TABLET PER DAY
  3. ASPIRINA [Concomitant]
     Dosage: 100 MG, 1X/DAY

REACTIONS (2)
  - Carcinoid tumour of the prostate [Not Recovered/Not Resolved]
  - Hypoacusis [Not Recovered/Not Resolved]
